FAERS Safety Report 6538172-5 (Version None)
Quarter: 2010Q1

REPORT INFORMATION
  Report Type: 
  Country: None (occurrence: None)
  Receive Date: 20100114
  Receipt Date: 20100104
  Transmission Date: 20100710
  Serious: Yes (Death, Hospitalization, Other)
  Sender: FDA-Public Use
  Company Number: PHHY2010BR00512

PATIENT
  Sex: Male

DRUGS (6)
  1. EXELON [Suspect]
     Indication: DEMENTIA ALZHEIMER'S TYPE
     Dosage: 6 MG, QD
     Route: 048
     Dates: start: 20090101, end: 20090701
  2. EXELON [Suspect]
     Dosage: 6 MG, BID
     Route: 048
     Dates: start: 20090701
  3. DIOVAN HCT [Suspect]
     Indication: HYPERTENSION
     Dosage: 1 DF, QD, AT NIGHT
     Route: 048
     Dates: start: 20090101
  4. FORASEQ [Suspect]
     Indication: EMPHYSEMA
     Dosage: 12/400 MCG, 2 INHALATIONS A DAY
  5. AMINOPHYLLINE [Concomitant]
     Indication: EMPHYSEMA
     Dosage: UNK
     Route: 065
     Dates: start: 19960101
  6. AEROFLUX [Concomitant]
     Indication: EMPHYSEMA
     Dosage: UNK
     Route: 065
     Dates: start: 19960101

REACTIONS (11)
  - BLOOD PRESSURE DECREASED [None]
  - CARDIAC ARREST [None]
  - DEMENTIA ALZHEIMER'S TYPE [None]
  - HYPOXIA [None]
  - MEMORY IMPAIRMENT [None]
  - MULTI-ORGAN FAILURE [None]
  - PLEURAL EFFUSION [None]
  - PNEUMONIA [None]
  - PULMONARY FIBROSIS [None]
  - RESPIRATORY ARREST [None]
  - THORACIC CAVITY DRAINAGE [None]
